FAERS Safety Report 7877914-3 (Version None)
Quarter: 2011Q4

REPORT INFORMATION
  Report Type: 
  Country: None (occurrence: None)
  Receive Date: 20111031
  Receipt Date: 20111031
  Transmission Date: 20120403
  Serious: Yes (Other)
  Sender: FDA-Public Use
  Company Number: CA-AMGEN-CANSP2011016871

PATIENT
  Age: 50 Year
  Sex: Female
  Weight: 81.6 kg

DRUGS (3)
  1. ENBREL [Suspect]
     Indication: PSORIASIS
     Dosage: 50 MG, 2 TIMES/WK
     Dates: start: 20091020, end: 20100830
  2. HUMIRA [Concomitant]
     Dosage: UNK
  3. METHOTREXATE [Concomitant]

REACTIONS (1)
  - DOUBLE STRANDED DNA ANTIBODY POSITIVE [None]
